FAERS Safety Report 18510047 (Version 4)
Quarter: 2021Q1

REPORT INFORMATION
  Report Type: Report from Study
  Country: CN (occurrence: CN)
  Receive Date: 20201117
  Receipt Date: 20210112
  Transmission Date: 20210419
  Serious: Yes (Death, Hospitalization)
  Sender: FDA-Public Use
  Company Number: CN-TEVA-2020-CN-1849261

PATIENT
  Age: 63 Year
  Sex: Male

DRUGS (17)
  1. IBUPROFEN. [Concomitant]
     Active Substance: IBUPROFEN
     Dates: start: 20200728, end: 20200728
  2. CIMETIDINE [Concomitant]
     Active Substance: CIMETIDINE
     Dates: start: 20200730, end: 20200730
  3. PALONOSETRON HYDROCHLORIDE. [Concomitant]
     Active Substance: PALONOSETRON HYDROCHLORIDE
     Dates: start: 20200731, end: 20200801
  4. LEVOFLOXACIN. [Concomitant]
     Active Substance: LEVOFLOXACIN
     Dates: start: 20200728, end: 20200728
  5. POLYSACC IRON COMPLEX [Concomitant]
     Active Substance: FERRIC POLYSACCHARIDE COMPLEX
     Dates: start: 20200723, end: 20200814
  6. CELEBREX [Concomitant]
     Active Substance: CELECOXIB
     Dates: start: 20200730, end: 20200731
  7. BENDAMUSTINE [Suspect]
     Active Substance: BENDAMUSTINE
     Indication: DIFFUSE LARGE B-CELL LYMPHOMA
     Dosage: 150.3 MG, EVERY 21 DAYS. LAST DOSE BEFORE AE: 19?AUG?2020
     Route: 042
     Dates: start: 20200731
  8. CELEBREX [Concomitant]
     Active Substance: CELECOXIB
     Dates: start: 20200818, end: 20200818
  9. CIMETIDINE [Concomitant]
     Active Substance: CIMETIDINE
     Dates: start: 20200819, end: 20200819
  10. DEXAMETHASONE ACETATE [Concomitant]
     Active Substance: DEXAMETHASONE ACETATE
     Dates: start: 20200730, end: 20200730
  11. ENTECAVIR. [Concomitant]
     Active Substance: ENTECAVIR
     Dates: start: 20200731
  12. RITUXIMAB. [Suspect]
     Active Substance: RITUXIMAB
     Indication: DIFFUSE LARGE B-CELL LYMPHOMA
     Dosage: 626.25 MG, EVERY 21 DAYS. LAST DOSE BEFORE AE: 19?AUG?2020
     Route: 041
     Dates: start: 20200730
  13. CELECOXIB. [Concomitant]
     Active Substance: CELECOXIB
     Dates: start: 20200727, end: 20200728
  14. THYMOPENTIN [Concomitant]
     Active Substance: THYMOPENTIN
     Dosage: 10 MILLIGRAM DAILY;
     Route: 058
     Dates: start: 20200803, end: 20200803
  15. COMPOUND SULFAMETHOXAZOLE [Concomitant]
     Active Substance: SULFAMETHOXAZOLE
     Dates: start: 20200803, end: 20200803
  16. COMPOUND PARACETAMOL AND DIPHENHYDRAMINE HYDROCHLORIDE [Concomitant]
     Dates: start: 20200819, end: 20200819
  17. GAMMA GLOBULIN [Concomitant]
     Active Substance: IMMUNE GLOBULIN NOS
     Route: 042
     Dates: start: 20200803, end: 20200803

REACTIONS (1)
  - Intervertebral disc protrusion [Not Recovered/Not Resolved]

NARRATIVE: CASE EVENT DATE: 20200821
